FAERS Safety Report 21968315 (Version 3)
Quarter: 2023Q2

REPORT INFORMATION
  Report Type: Report from Study
  Country: CA (occurrence: CA)
  Receive Date: 20230208
  Receipt Date: 20230530
  Transmission Date: 20230721
  Serious: Yes (Other)
  Sender: FDA-Public Use
  Company Number: CA-002147023-NVSC2023CA024846

PATIENT
  Age: 52 Year
  Sex: Female

DRUGS (2)
  1. TACROLIMUS [Suspect]
     Active Substance: TACROLIMUS
     Indication: Acute graft versus host disease
     Dosage: UNK
     Route: 065
     Dates: start: 20211213, end: 20220216
  2. BETAMETHASONE [Suspect]
     Active Substance: BETAMETHASONE
     Indication: Acute graft versus host disease
     Dosage: UNK UNK, QID (MOUTH RINSE FOUR TIMEX DAILY)
     Route: 065
     Dates: start: 20220720, end: 20220814

REACTIONS (3)
  - Graft versus host disease [Unknown]
  - Product use in unapproved indication [Recovered/Resolved]
  - Drug ineffective [Unknown]

NARRATIVE: CASE EVENT DATE: 20211213
